FAERS Safety Report 20269378 (Version 2)
Quarter: 2022Q1

REPORT INFORMATION
  Report Type: Other
  Country: US (occurrence: None)
  Receive Date: 20220101
  Receipt Date: 20220119
  Transmission Date: 20220423
  Serious: Yes (Death)
  Sender: FDA-Public Use
  Company Number: US-ROCHE-2993310

PATIENT
  Age: 80 Year
  Sex: Female

DRUGS (41)
  1. ACTEMRA [Suspect]
     Active Substance: TOCILIZUMAB
     Indication: Autoimmune disorder
     Dosage: INJECT 162MG, 0.9 ML SUBCUTANEOUSLY EVERY 7 DAY(S)
     Route: 058
  2. ACTEMRA [Suspect]
     Active Substance: TOCILIZUMAB
  3. ACTEMRA [Suspect]
     Active Substance: TOCILIZUMAB
  4. ACTEMRA [Suspect]
     Active Substance: TOCILIZUMAB
     Indication: Type 2 diabetes mellitus
  5. ACTEMRA [Suspect]
     Active Substance: TOCILIZUMAB
  6. ACTEMRA [Suspect]
     Active Substance: TOCILIZUMAB
  7. ACTEMRA [Suspect]
     Active Substance: TOCILIZUMAB
     Indication: Macular oedema
  8. ACTEMRA [Suspect]
     Active Substance: TOCILIZUMAB
  9. ACTEMRA [Suspect]
     Active Substance: TOCILIZUMAB
  10. FOSAMAX [Concomitant]
     Active Substance: ALENDRONATE SODIUM
     Route: 048
  11. NORVASC [Concomitant]
     Active Substance: AMLODIPINE BESYLATE
     Route: 048
  12. ASPIRIN [Concomitant]
     Active Substance: ASPIRIN
     Route: 048
  13. LIPITOR [Concomitant]
     Active Substance: ATORVASTATIN CALCIUM
  14. BRIMONIDINE [Concomitant]
     Active Substance: BRIMONIDINE TARTRATE
     Dosage: INSTILL 1 DROP INTO THE RIGHT EYE THREE TIMES DAILY
  15. CALCIUM CARBONATE [Concomitant]
     Active Substance: CALCIUM CARBONATE
  16. COSOPT [Concomitant]
     Active Substance: DORZOLAMIDE HYDROCHLORIDE\TIMOLOL MALEATE
     Dosage: INSTILL 1 DROP INTO THE RIGHT EYE TWO TIMES A DAILY
  17. VITAMIN D2 [Concomitant]
     Active Substance: ERGOCALCIFEROL
     Dosage: TAKE 1 CAPSULE BY MOUTH EVERY SEVEN DAYS
  18. ERYTHROMYCIN [Concomitant]
     Active Substance: ERYTHROMYCIN
     Dosage: APPLY A THIN FILM TO SCALP INCISION TWICE DAILY FOR ONE WEEK
  19. NEURONTIN [Concomitant]
     Active Substance: GABAPENTIN
  20. NARCO [Concomitant]
     Dosage: TAKE 1 TABLET BY MOUTH EVERY FOUR HOURS AS NEEDED FOR SEVERE PAIN.
  21. NOVOLOG [Concomitant]
     Active Substance: INSULIN ASPART
     Dosage: INJECT 12 UNIT UNDER SKIN
  22. LEVEMIR [Concomitant]
     Active Substance: INSULIN DETEMIR
     Dosage: INJECT 30 UNIT UNDER SKIN
  23. XALATAN [Concomitant]
     Active Substance: LATANOPROST
     Dosage: INSTILL 1 DROP INTO THE RIGHT EYE ONCE DAILY IN THE EVENING
  24. PRINIVIL [Concomitant]
     Active Substance: LISINOPRIL
     Route: 048
  25. GLUCOPHAGE [Concomitant]
     Active Substance: METFORMIN HYDROCHLORIDE
     Route: 048
  26. PRILOSEC [Concomitant]
     Active Substance: OMEPRAZOLE MAGNESIUM
     Dosage: TAKE 1 CAPSULE BY MOUTH AS NEEDED
  27. PRED FORTE [Concomitant]
     Active Substance: PREDNISOLONE ACETATE
  28. DELTASONE [Concomitant]
     Active Substance: PREDNISONE
     Dosage: 3 TABLET BY MOUTH ONCE DAILY
  29. BACTRIM DS [Concomitant]
     Active Substance: SULFAMETHOXAZOLE\TRIMETHOPRIM
  30. METHOTREXATE [Concomitant]
     Active Substance: METHOTREXATE
  31. FOSAMAX [Concomitant]
     Active Substance: ALENDRONATE SODIUM
  32. ASPIRIN [Concomitant]
     Active Substance: ASPIRIN
  33. ATORVASTATIN [Concomitant]
     Active Substance: ATORVASTATIN
  34. BRIMONIDINE [Concomitant]
     Active Substance: BRIMONIDINE TARTRATE
  35. COSOPT [Concomitant]
     Active Substance: DORZOLAMIDE HYDROCHLORIDE\TIMOLOL MALEATE
  36. GABAPENTIN [Concomitant]
     Active Substance: GABAPENTIN
  37. INSULIN NOS [Concomitant]
     Active Substance: INSULIN NOS
  38. LATANOPROST [Concomitant]
     Active Substance: LATANOPROST
  39. LISINOPRIL [Concomitant]
     Active Substance: LISINOPRIL
  40. METHOTREXATE [Concomitant]
     Active Substance: METHOTREXATE
  41. PREDNISONE [Concomitant]
     Active Substance: PREDNISONE

REACTIONS (1)
  - Death [Fatal]

NARRATIVE: CASE EVENT DATE: 20211225
